FAERS Safety Report 5583192-0 (Version None)
Quarter: 2008Q1

REPORT INFORMATION
  Report Type: 
  Country: None (occurrence: None)
  Receive Date: 20080103
  Receipt Date: 20080103
  Transmission Date: 20080703
  Serious: Yes (Hospitalization, Other)
  Sender: FDA-Public Use
  Company Number: None

PATIENT
  Age: 61 Year
  Sex: Female

DRUGS (1)
  1. APROTININ [Suspect]
     Dosage: TEST DOSE  ONCE  IV
     Route: 042

REACTIONS (1)
  - ANAPHYLACTOID REACTION [None]
